FAERS Safety Report 5112363-2 (Version None)
Quarter: 2006Q3

REPORT INFORMATION
  Report Type: 
  Country: None (occurrence: None)
  Receive Date: 20060922
  Receipt Date: 20060707
  Transmission Date: 20061208
  Serious: No
  Sender: FDA-Public Use
  Company Number: US-GLAXOSMITHKLINE-A0611369A

PATIENT
  Age: 66 Year
  Sex: Female

DRUGS (2)
  1. ABREVA [Suspect]
     Dates: start: 20060630, end: 20060630
  2. SYNTHROID [Concomitant]

REACTIONS (5)
  - HYPERSENSITIVITY [None]
  - HYPOAESTHESIA FACIAL [None]
  - HYPOAESTHESIA ORAL [None]
  - PHARYNGEAL OEDEMA [None]
  - SWOLLEN TONGUE [None]
